FAERS Safety Report 13414186 (Version 3)
Quarter: 2017Q2

REPORT INFORMATION
  Report Type: Spontaneous
  Country: CH (occurrence: CH)
  Receive Date: 20170407
  Receipt Date: 20170418
  Transmission Date: 20170830
  Serious: Yes (Other)
  Sender: FDA-Public Use
  Company Number: CH-PFIZER INC-2017148495

PATIENT
  Age: 45 Day
  Sex: Male
  Weight: 2.8 kg

DRUGS (10)
  1. SOLDACTONE [Concomitant]
     Active Substance: CANRENOATE POTASSIUM
     Dosage: 1X DAILY 6 MG, IS STILL ADMINISTERED 1X DAILY
     Route: 042
     Dates: start: 20170205
  2. LEVETIRACETAM DESITIN [Concomitant]
     Active Substance: LEVETIRACETAM
     Dosage: 1X DAILY 70 MG, IS STILL ADMINISTERED 1X DAILY
     Route: 042
     Dates: start: 20170219
  3. MERONEM [Concomitant]
     Active Substance: MEROPENEM
     Dosage: 45 MG EVERY 8 HOURS
     Route: 042
     Dates: start: 20170304, end: 20170306
  4. DIFLUCAN [Suspect]
     Active Substance: FLUCONAZOLE
     Indication: ANTIFUNGAL PROPHYLAXIS
     Dosage: 11 MG, 1X/DAY
     Route: 042
     Dates: start: 20170303, end: 20170304
  5. FENTANYL SINTETICA [Interacting]
     Active Substance: FENTANYL CITRATE
     Indication: ANALGESIC THERAPY
  6. FENTANYL SINTETICA [Interacting]
     Active Substance: FENTANYL CITRATE
     Indication: SEDATION
     Dosage: 0.1 MG, UNK (0.1 MG/2 ML CONTAINS 0.1 MG FENTANYL PER 2 ML)
     Route: 042
     Dates: start: 20170216, end: 20170311
  7. LASIX [Concomitant]
     Active Substance: FUROSEMIDE
     Dosage: CONTINUOUS DRIP 0.4 MG/KG/H, IS STILL BEING ADMINISTERED CONTINUOUSLY
     Route: 042
     Dates: start: 20170224
  8. KONAKION MM [Concomitant]
     Active Substance: PHYTONADIONE
     Dosage: 2 MG, 1X/DAY
     Route: 042
     Dates: start: 20170227, end: 20170314
  9. TARGOCID [Concomitant]
     Active Substance: TEICOPLANIN
     Dosage: 23 MG EVERY 12 HOURS
     Route: 042
     Dates: start: 20170304, end: 20170305
  10. PHENOBARBITAL BICHSEL /00023201/ [Interacting]
     Active Substance: PHENOBARBITAL
     Dosage: 7 MG, 1X/DAY
     Dates: start: 20170219, end: 20170308

REACTIONS (3)
  - Respiratory depression [Recovered/Resolved]
  - Drug interaction [Recovered/Resolved]
  - Coma [Recovered/Resolved]

NARRATIVE: CASE EVENT DATE: 20170304
